FAERS Safety Report 9197651 (Version 1)
Quarter: 2013Q1

REPORT INFORMATION
  Report Type: Spontaneous
  Country: US (occurrence: US)
  Receive Date: 20130328
  Receipt Date: 20130328
  Transmission Date: 20140127
  Serious: No
  Sender: FDA-Public Use
  Company Number: US-ASTRAZENECA-2013SE18592

PATIENT
  Age: 55 Year
  Sex: Female
  Weight: 56.7 kg

DRUGS (11)
  1. NEXIUM [Suspect]
     Indication: GASTROOESOPHAGEAL REFLUX DISEASE
     Route: 048
     Dates: start: 2001, end: 201211
  2. ASPIRIN [Suspect]
     Indication: PLATELET DISORDER
     Route: 048
  3. INSULIN PUMP [Concomitant]
     Indication: DIABETES MELLITUS
     Dosage: DAILY
     Route: 050
  4. PRESERVISION [Concomitant]
     Indication: MUSCLE ATROPHY
     Dosage: UNK DAILY
     Route: 048
  5. VIT D [Concomitant]
     Indication: VITAMIN SUPPLEMENTATION
     Dosage: 1000 UNITS DAILY
     Route: 048
  6. QUINAPRIL [Concomitant]
     Indication: HYPERTENSION
     Route: 048
  7. ZETIA [Concomitant]
     Indication: BLOOD CHOLESTEROL ABNORMAL
     Route: 048
  8. C-PAP [Concomitant]
     Indication: SLEEP APNOEA SYNDROME
     Dosage: UNK DAILY
     Route: 050
  9. LEVOCETIRIZINE [Concomitant]
     Indication: MULTIPLE ALLERGIES
     Route: 048
  10. PREVACID [Concomitant]
     Indication: GASTROOESOPHAGEAL REFLUX DISEASE
  11. PREVACID [Concomitant]
     Indication: HIATUS HERNIA

REACTIONS (6)
  - Gastrooesophageal reflux disease [Not Recovered/Not Resolved]
  - Gastrooesophageal reflux disease [Unknown]
  - Vomiting [Not Recovered/Not Resolved]
  - Abdominal pain upper [Not Recovered/Not Resolved]
  - Drug hypersensitivity [Unknown]
  - Intentional drug misuse [Unknown]
